FAERS Safety Report 21581088 (Version 1)
Quarter: 2022Q4

REPORT INFORMATION
  Report Type: Spontaneous
  Country: FR (occurrence: FR)
  Receive Date: 20221111
  Receipt Date: 20221111
  Transmission Date: 20230113
  Serious: Yes (Other)
  Sender: FDA-Public Use
  Company Number: FR-ABBVIE-4194203

PATIENT
  Age: 86 Year
  Sex: Female

DRUGS (2)
  1. VENETOCLAX [Suspect]
     Active Substance: VENETOCLAX
     Indication: Chronic lymphocytic leukaemia
     Route: 048
  2. FASTURTEC [Suspect]
     Active Substance: RASBURICASE
     Indication: Chronic lymphocytic leukaemia
     Route: 065

REACTIONS (2)
  - Acute pulmonary oedema [Unknown]
  - Haemolytic anaemia [Unknown]
